FAERS Safety Report 20718387 (Version 1)
Quarter: 2022Q2

REPORT INFORMATION
  Report Type: Spontaneous
  Country: CN (occurrence: CN)
  Receive Date: 20220418
  Receipt Date: 20220418
  Transmission Date: 20220721
  Serious: Yes (Life-Threatening, Other)
  Sender: FDA-Public Use
  Company Number: CN-AMGEN-CHNSP2022065142

PATIENT

DRUGS (4)
  1. FILGRASTIM [Suspect]
     Active Substance: FILGRASTIM
     Indication: Haematopoietic stem cell mobilisation
     Dosage: 5 MCG/KG/DAY, FROM D5 UNTIL THE DAY OF APHERESIS
     Route: 065
  2. ETOPOSIDE [Concomitant]
     Active Substance: ETOPOSIDE
     Indication: Plasma cell myeloma
     Dosage: 50-100 MG/M2, QD D1-3
     Route: 065
  3. CYTARABINE [Concomitant]
     Active Substance: CYTARABINE
     Indication: Plasma cell myeloma
     Dosage: 0.5 GRAM PER SQUARE METRE, Q12H, D1-3
     Route: 065
  4. LENALIDOMIDE [Concomitant]
     Active Substance: LENALIDOMIDE
     Dosage: UNK

REACTIONS (11)
  - Haematotoxicity [Unknown]
  - Neutropenia [Unknown]
  - Febrile neutropenia [Unknown]
  - Respiratory tract infection [Unknown]
  - Oral infection [Unknown]
  - Soft tissue infection [Unknown]
  - Septic shock [Unknown]
  - Gastric infection [Unknown]
  - Thrombocytopenia [Unknown]
  - Sepsis [Unknown]
  - Pyrexia [Unknown]
